FAERS Safety Report 15644545 (Version 1)
Quarter: 2018Q4

REPORT INFORMATION
  Report Type: Spontaneous
  Country: US (occurrence: US)
  Receive Date: 20181121
  Receipt Date: 20181121
  Transmission Date: 20190205
  Serious: No
  Sender: FDA-Public Use
  Company Number: US-GLAXOSMITHKLINE-US2018204741

PATIENT
  Sex: Female

DRUGS (1)
  1. BENLYSTA [Suspect]
     Active Substance: BELIMUMAB
     Indication: PRODUCT USED FOR UNKNOWN INDICATION
     Dosage: UNK UNK, U
     Route: 042
     Dates: start: 2015

REACTIONS (6)
  - Disease progression [Unknown]
  - Liver disorder [Unknown]
  - Malaise [Not Recovered/Not Resolved]
  - Pancreatic disorder [Unknown]
  - Oesophagogastroduodenoscopy [Unknown]
  - Drug ineffective [Unknown]
